FAERS Safety Report 21283949 (Version 1)
Quarter: 2022Q3

REPORT INFORMATION
  Report Type: Spontaneous
  Country: US (occurrence: None)
  Receive Date: 20220901
  Receipt Date: 20220901
  Transmission Date: 20221027
  Serious: No
  Sender: FDA-Public Use
  Company Number: None

PATIENT
  Sex: Female

DRUGS (1)
  1. FORTEO [Suspect]
     Active Substance: TERIPARATIDE
     Indication: Senile osteoporosis
     Dosage: OTHER STRENGTH : 600MCG/2.4ML;?FREQUENCY : DAILY;?
     Route: 058
     Dates: start: 202110, end: 202208

REACTIONS (8)
  - Nausea [None]
  - Blood pressure increased [None]
  - Arrhythmia [None]
  - Blood calcium increased [None]
  - Polyuria [None]
  - Constipation [None]
  - Therapy cessation [None]
  - Drug ineffective [None]
